FAERS Safety Report 9422936 (Version 1)
Quarter: 2013Q3

REPORT INFORMATION
  Report Type: Spontaneous
  Country: PL (occurrence: PL)
  Receive Date: 20130726
  Receipt Date: 20130726
  Transmission Date: 20140515
  Serious: Yes (Life-Threatening)
  Sender: FDA-Public Use
  Company Number: PL-ACTAVIS-2013-13076

PATIENT
  Age: 66 Year
  Sex: Female

DRUGS (1)
  1. PACLITAXEL (UNKNOWN) [Suspect]
     Indication: RETROPERITONEAL CANCER
     Dosage: 280 MG, UNKNOWN
     Route: 042
     Dates: start: 20130607, end: 20130607

REACTIONS (1)
  - Erythema [Unknown]
